FAERS Safety Report 5638242-X (Version None)
Quarter: 2008Q1

REPORT INFORMATION
  Report Type: 
  Country: None (occurrence: None)
  Receive Date: 20080220
  Receipt Date: 20080212
  Transmission Date: 20080703
  Serious: Yes (Other)
  Sender: FDA-Public Use
  Company Number: 023734

PATIENT
  Sex: Female

DRUGS (7)
  1. HYDROXYUREA [Suspect]
     Indication: PLATELET COUNT INCREASED
     Dosage: 1 CAPS., QD, ORAL
     Route: 048
     Dates: start: 20071201, end: 20080101
  2. HYDROXYUREA [Suspect]
     Indication: PLATELET COUNT INCREASED
     Dosage: 1 CAPS., QD, ORAL
     Route: 048
     Dates: start: 20080208
  3. ATENOLOL [Concomitant]
  4. CADUET [Concomitant]
  5. COUMADIN [Concomitant]
  6. GLYBURIDE [Concomitant]
  7. METFORMIN HCL [Concomitant]

REACTIONS (10)
  - ANAEMIA [None]
  - ANOREXIA [None]
  - ASTHENIA [None]
  - CHILLS [None]
  - DIZZINESS [None]
  - ENURESIS [None]
  - FATIGUE [None]
  - HYPERSOMNIA [None]
  - MEMORY IMPAIRMENT [None]
  - TREATMENT NONCOMPLIANCE [None]
